FAERS Safety Report 4440673-0 (Version None)
Quarter: 2004Q3

REPORT INFORMATION
  Report Type: 
  Country: None (occurrence: None)
  Receive Date: 20040728
  Receipt Date: 20040505
  Transmission Date: 20050211
  Serious: No
  Sender: FDA-Public Use
  Company Number: USA040259420

PATIENT
  Age: 10 Year
  Sex: Male
  Weight: 30 kg

DRUGS (3)
  1. STRATTERA [Suspect]
     Indication: ATTENTION DEFICIT/HYPERACTIVITY DISORDER
     Dosage: 40 MG DAY
     Dates: start: 20030101
  2. CONCERTA [Suspect]
  3. MULTIVITAMIN [Concomitant]

REACTIONS (6)
  - ANGER [None]
  - ANOREXIA [None]
  - FATIGUE [None]
  - PERSONALITY CHANGE [None]
  - SLEEP DISORDER [None]
  - SOMNOLENCE [None]
